FAERS Safety Report 15832135 (Version 1)
Quarter: 2019Q1

REPORT INFORMATION
  Report Type: Spontaneous
  Country: US (occurrence: US)
  Receive Date: 20190114
  Receipt Date: 20190114
  Transmission Date: 20190417
  Serious: Yes (Life-Threatening, Other)
  Sender: FDA-Public Use
  Company Number: None

PATIENT
  Age: 76 Year
  Sex: Female

DRUGS (1)
  1. HYDROXYZINE HCL 50MG TAB [Suspect]
     Active Substance: HYDROXYZINE HYDROCHLORIDE
     Indication: PRURITUS

REACTIONS (5)
  - Swelling face [None]
  - Throat tightness [None]
  - Swelling [None]
  - Eye swelling [None]
  - Rash erythematous [None]

NARRATIVE: CASE EVENT DATE: 20190108
